FAERS Safety Report 7718208-6 (Version None)
Quarter: 2011Q3

REPORT INFORMATION
  Report Type: 
  Country: None (occurrence: None)
  Receive Date: 20110830
  Receipt Date: 20110816
  Transmission Date: 20111222
  Serious: Yes (Other)
  Sender: FDA-Public Use
  Company Number: PHEH2011US02310

PATIENT

DRUGS (4)
  1. METHYLPREDNISOLONE [Concomitant]
  2. UNASYN [Concomitant]
     Route: 042
  3. SIMULECT [Suspect]
     Indication: PROPHYLAXIS AGAINST TRANSPLANT REJECTION
     Dosage: 10 MG, UNK
     Route: 042
     Dates: start: 20091026
  4. SIMULECT [Suspect]
     Dosage: 10 MG, UNK
     Route: 042
     Dates: start: 20101030

REACTIONS (3)
  - HEPATIC ARTERY THROMBOSIS [None]
  - HEPATIC CIRRHOSIS [None]
  - LIVER TRANSPLANT REJECTION [None]
